FAERS Safety Report 7403246-3 (Version None)
Quarter: 2011Q2

REPORT INFORMATION
  Report Type: 
  Country: None (occurrence: None)
  Receive Date: 20110408
  Receipt Date: 20110403
  Transmission Date: 20111010
  Serious: Yes (Death, Other)
  Sender: FDA-Public Use
  Company Number: BR-ROCHE-769176

PATIENT
  Age: 36 Year
  Sex: Female

DRUGS (2)
  1. RIVOTRIL [Suspect]
     Route: 065
  2. DORMONID [Suspect]
     Route: 065

REACTIONS (2)
  - SUICIDE ATTEMPT [None]
  - FEELING ABNORMAL [None]
